FAERS Safety Report 18758371 (Version 1)
Quarter: 2021Q1

REPORT INFORMATION
  Report Type: Spontaneous
  Country: JP (occurrence: JP)
  Receive Date: 20210119
  Receipt Date: 20210119
  Transmission Date: 20210419
  Serious: Yes (Death)
  Sender: FDA-Public Use
  Company Number: JP-DSJP-DSJ-2021-101066AA

PATIENT
  Age: 73 Year
  Sex: Female
  Weight: 39 kg

DRUGS (13)
  1. AMLODIPINE                         /00972402/ [Suspect]
     Active Substance: AMLODIPINE BESYLATE
     Indication: AORTIC ANEURYSM
  2. TOWAMIN [Suspect]
     Active Substance: ATENOLOL
     Indication: HYPERTENSION
     Dosage: 25 MG, QD
     Route: 048
  3. AMLODIPINE                         /00972402/ [Suspect]
     Active Substance: AMLODIPINE BESYLATE
     Indication: HYPERTENSION
     Dosage: 2.5 MG, QD
     Route: 048
  4. OPALMON [Suspect]
     Active Substance: LIMAPROST
     Indication: PERIPHERAL ARTERIAL OCCLUSIVE DISEASE
     Dosage: 5 MG, TID
     Route: 048
  5. TOWAMIN [Suspect]
     Active Substance: ATENOLOL
     Indication: AORTIC ANEURYSM
  6. AMLODIPINE                         /00972402/ [Suspect]
     Active Substance: AMLODIPINE BESYLATE
     Indication: AORTIC ANEURYSM
  7. OLMETEC OD TABLETS 10MG [Suspect]
     Active Substance: OLMESARTAN MEDOXOMIL
     Indication: HYPERTENSION
     Dosage: 10 MG, QD
     Route: 048
     Dates: start: 20100916
  8. TOWAMIN [Suspect]
     Active Substance: ATENOLOL
     Indication: PERIPHERAL ARTERY ANEURYSM
  9. OLMETEC OD TABLETS 10MG [Suspect]
     Active Substance: OLMESARTAN MEDOXOMIL
     Indication: AORTIC ANEURYSM
  10. TOWAMIN [Suspect]
     Active Substance: ATENOLOL
     Indication: AORTIC ANEURYSM
  11. OLMETEC OD TABLETS 10MG [Suspect]
     Active Substance: OLMESARTAN MEDOXOMIL
     Indication: PERIPHERAL ARTERY ANEURYSM
  12. AMLODIPINE                         /00972402/ [Suspect]
     Active Substance: AMLODIPINE BESYLATE
     Indication: PERIPHERAL ARTERY ANEURYSM
  13. OLMETEC OD TABLETS 10MG [Suspect]
     Active Substance: OLMESARTAN MEDOXOMIL
     Indication: AORTIC ANEURYSM

REACTIONS (1)
  - Death [Fatal]
